FAERS Safety Report 6537065-7 (Version None)
Quarter: 2010Q1

REPORT INFORMATION
  Report Type: 
  Country: None (occurrence: None)
  Receive Date: 20100114
  Receipt Date: 20100107
  Transmission Date: 20100710
  Serious: Yes (Other)
  Sender: FDA-Public Use
  Company Number: US-BIOGENIDEC-2009BI040455

PATIENT
  Age: 51 Year
  Sex: Female

DRUGS (4)
  1. TYSABRI [Suspect]
     Indication: MULTIPLE SCLEROSIS
     Route: 042
     Dates: start: 20071217, end: 20090818
  2. ZOMETA [Concomitant]
     Route: 042
  3. SALINE GEL [Concomitant]
     Indication: EPISTAXIS
     Route: 045
  4. PROCRIT [Concomitant]
     Indication: ANAEMIA

REACTIONS (6)
  - BONE PAIN [None]
  - EPISTAXIS [None]
  - MULTIPLE MYELOMA [None]
  - MULTIPLE SCLEROSIS RELAPSE [None]
  - NECK PAIN [None]
  - PARAESTHESIA [None]
